FAERS Safety Report 5160838-2 (Version None)
Quarter: 2006Q4

REPORT INFORMATION
  Report Type: 
  Country: None (occurrence: None)
  Receive Date: 20061121
  Receipt Date: 20061109
  Transmission Date: 20070319
  Serious: Yes (Life-Threatening, Hospitalization)
  Sender: FDA-Public Use
  Company Number: POMP-10859

PATIENT
  Age: 20 Month
  Sex: Female
  Weight: 8 kg

DRUGS (6)
  1. MYOZYME [Suspect]
     Indication: GLYCOGEN STORAGE DISEASE TYPE II
     Dosage: 20 MG/KG Q2WKS IV
     Route: 042
     Dates: start: 20060505
  2. MYOZYME [Suspect]
     Indication: GLYCOGEN STORAGE DISEASE TYPE II
     Dosage: 20 MG/KG Q2WKS IV
     Route: 042
     Dates: start: 20051021, end: 20060401
  3. HCL THIAZIDE [Concomitant]
  4. SPIRONOLACTONE [Concomitant]
  5. DIGITALIS TAB [Concomitant]
  6. ENALAPRIL MALEATE [Concomitant]

REACTIONS (11)
  - ABDOMINAL INFECTION [None]
  - ALANINE AMINOTRANSFERASE INCREASED [None]
  - ASPARTATE AMINOTRANSFERASE INCREASED [None]
  - CARDIAC DISORDER [None]
  - CARDIAC VENTRICULAR DISORDER [None]
  - CONDITION AGGRAVATED [None]
  - DIARRHOEA [None]
  - GENERAL PHYSICAL HEALTH DETERIORATION [None]
  - MOOD ALTERED [None]
  - VIRAL INFECTION [None]
  - WEIGHT DECREASED [None]
